FAERS Safety Report 23379084 (Version 1)
Quarter: 2024Q1

REPORT INFORMATION
  Report Type: Spontaneous
  Country: NO (occurrence: NO)
  Receive Date: 20240108
  Receipt Date: 20240108
  Transmission Date: 20240410
  Serious: Yes (Other)
  Sender: FDA-Public Use
  Company Number: None

PATIENT
  Age: 30 Year
  Sex: Female

DRUGS (3)
  1. CYTOTEC [Suspect]
     Active Substance: MISOPROSTOL
     Indication: Induced labour
     Route: 067
     Dates: start: 20231129, end: 20231129
  2. ASPIRIN\MAGNESIUM OXIDE [Concomitant]
     Active Substance: ASPIRIN\MAGNESIUM OXIDE
     Indication: Prophylaxis
     Dosage: 75 MG, 1X/DAY
     Dates: start: 202305, end: 20231130
  3. METFORMIN ORIFARM [Concomitant]
     Indication: Gestational diabetes
     Dosage: 500 MG MORNING, AND 1000 MG EVENING
     Dates: start: 202308, end: 20231129

REACTIONS (3)
  - Precipitate labour [Recovered/Resolved]
  - Haemorrhage [Recovered/Resolved]
  - Off label use [Recovered/Resolved]

NARRATIVE: CASE EVENT DATE: 20231129
